FAERS Safety Report 9538710 (Version 1)
Quarter: 2013Q3

REPORT INFORMATION
  Report Type: Spontaneous
  Country: FR (occurrence: FR)
  Receive Date: 20130920
  Receipt Date: 20130920
  Transmission Date: 20140515
  Serious: Yes (Hospitalization)
  Sender: FDA-Public Use
  Company Number: FR-MALLINCKRODT-T201304419

PATIENT
  Age: 51 Year
  Sex: Female

DRUGS (1)
  1. OPTIJECT 350 [Suspect]
     Indication: COMPUTERISED TOMOGRAM
     Dosage: 1 DOSAGE FORMS, 1 IN 1
     Route: 042
     Dates: start: 20130719, end: 20130719

REACTIONS (1)
  - Hypersensitivity [Recovered/Resolved]
